FAERS Safety Report 9310698 (Version 1)
Quarter: 2013Q2

REPORT INFORMATION
  Report Type: Spontaneous
  Country: DE (occurrence: DE)
  Receive Date: 20130527
  Receipt Date: 20130527
  Transmission Date: 20140414
  Serious: Yes (Death)
  Sender: FDA-Public Use
  Company Number: DE-ROCHE-1228715

PATIENT
  Sex: Male

DRUGS (4)
  1. BEVACIZUMAB [Suspect]
     Indication: NON-SMALL CELL LUNG CANCER
     Route: 065
     Dates: start: 201008, end: 201104
  2. TARCEVA [Suspect]
     Indication: NON-SMALL CELL LUNG CANCER
     Route: 065
     Dates: start: 20110415
  3. PEMETREXED [Concomitant]
     Indication: NON-SMALL CELL LUNG CANCER
     Route: 065
     Dates: start: 201008, end: 201104
  4. CISPLATIN [Concomitant]
     Indication: NON-SMALL CELL LUNG CANCER
     Route: 065
     Dates: start: 201008, end: 201104

REACTIONS (2)
  - Neoplasm malignant [Fatal]
  - Ascites [Fatal]
